FAERS Safety Report 9423586 (Version 1)
Quarter: 2013Q3

REPORT INFORMATION
  Report Type: Spontaneous
  Country: BE (occurrence: BE)
  Receive Date: 20130726
  Receipt Date: 20130726
  Transmission Date: 20140515
  Serious: Yes (Life-Threatening, Hospitalization)
  Sender: FDA-Public Use
  Company Number: BE-ASTRAZENECA-2013SE56809

PATIENT
  Age: 63 Year
  Sex: Male

DRUGS (2)
  1. BRILIQUE [Suspect]
     Route: 048
  2. ACETYLSALICYLIC ACID [Concomitant]

REACTIONS (2)
  - Multi-organ failure [Recovering/Resolving]
  - Haemorrhage [Recovering/Resolving]
